FAERS Safety Report 25635118 (Version 1)
Quarter: 2025Q3

REPORT INFORMATION
  Report Type: Spontaneous
  Country: IN (occurrence: None)
  Receive Date: 20250802
  Receipt Date: 20250802
  Transmission Date: 20251021
  Serious: Yes (Other)
  Sender: ACS DOBFAR
  Company Number: IN-MLMSERVICE-20250715-PI577753-00088-1

PATIENT
  Age: 60 Year
  Sex: Female

DRUGS (3)
  1. VANCOMYCIN [Suspect]
     Active Substance: VANCOMYCIN
     Indication: Bacterial endophthalmitis
  2. CEFTAZIDIME [Suspect]
     Active Substance: CEFTAZIDIME
     Indication: Bacterial endophthalmitis
  3. DEXAMETHASONE [Concomitant]
     Active Substance: DEXAMETHASONE
     Indication: Bacterial endophthalmitis

REACTIONS (3)
  - Retinal deposits [Recovered/Resolved]
  - Product deposit [Recovered/Resolved]
  - Off label use [Recovered/Resolved]
